FAERS Safety Report 15391138 (Version 1)
Quarter: 2018Q3

REPORT INFORMATION
  Report Type: Spontaneous
  Country: US (occurrence: US)
  Receive Date: 20180910
  Receipt Date: 20180910
  Transmission Date: 20181010
  Serious: Yes (Other)
  Sender: FDA-Public Use
  Company Number: None

PATIENT
  Age: 77 Year
  Sex: Female
  Weight: 70.65 kg

DRUGS (15)
  1. LEVOTHYROXINE. [Concomitant]
     Active Substance: LEVOTHYROXINE
  2. STOOL SOFTENER (DOCUSATE) [Concomitant]
     Active Substance: DOCUSATE
  3. VITAMIN D3 [Concomitant]
     Active Substance: CHOLECALCIFEROL
  4. BENADRYL [Concomitant]
     Active Substance: DIPHENHYDRAMINE HYDROCHLORIDE
  5. PROTONIX [Concomitant]
     Active Substance: PANTOPRAZOLE SODIUM
  6. DULOXETINE DR 30 MG CAP, DULOXETINE DR 20 MG CAP [Suspect]
     Active Substance: DULOXETINE
     Indication: OSTEOARTHRITIS
     Dosage: ?          QUANTITY:1 TABLET(S);?
     Route: 048
     Dates: start: 20171209, end: 20180830
  7. ATORVASTATIN [Concomitant]
     Active Substance: ATORVASTATIN
  8. PROBIOTIC/CULTURELLE [Concomitant]
  9. 81 MG ASPIRIN [Concomitant]
     Active Substance: ASPIRIN
  10. EQUATE FIBER THERAPY [Concomitant]
     Active Substance: CALCIUM POLYCARBOPHIL
  11. DULOXETINE DR 30 MG CAP, DULOXETINE DR 20 MG CAP [Suspect]
     Active Substance: DULOXETINE
     Indication: OSTEOPOROSIS
     Dosage: ?          QUANTITY:1 TABLET(S);?
     Route: 048
     Dates: start: 20171209, end: 20180830
  12. HCTZ [Concomitant]
     Active Substance: HYDROCHLOROTHIAZIDE
  13. CYCLOBENAZPRINE [Concomitant]
     Active Substance: CYCLOBENZAPRINE
  14. DULOXETINE DR 30 MG CAP, DULOXETINE DR 20 MG CAP [Suspect]
     Active Substance: DULOXETINE
     Indication: ARTHRITIS
     Dosage: ?          QUANTITY:1 TABLET(S);?
     Route: 048
     Dates: start: 20171209, end: 20180830
  15. EXCEDRIN [Concomitant]
     Active Substance: ACETAMINOPHEN\ASPIRIN\CAFFEINE

REACTIONS (5)
  - Fall [None]
  - Aggression [None]
  - Hyperhidrosis [None]
  - Nightmare [None]
  - Limb injury [None]

NARRATIVE: CASE EVENT DATE: 20180418
